FAERS Safety Report 15538898 (Version 3)
Quarter: 2018Q4

REPORT INFORMATION
  Report Type: Spontaneous
  Country: US (occurrence: US)
  Receive Date: 20181022
  Receipt Date: 20181024
  Transmission Date: 20190205
  Serious: Yes (Other)
  Sender: FDA-Public Use
  Company Number: US-SA-2018SA289931

PATIENT
  Age: 61 Year
  Sex: Male

DRUGS (1)
  1. PRALUENT [Suspect]
     Active Substance: ALIROCUMAB
     Dosage: UNK
     Route: 058
     Dates: start: 201801

REACTIONS (5)
  - Angina pectoris [Unknown]
  - Bone pain [Unknown]
  - Product use issue [Unknown]
  - Musculoskeletal pain [Unknown]
  - Pain in extremity [Unknown]

NARRATIVE: CASE EVENT DATE: 20180927
